FAERS Safety Report 24959239 (Version 2)
Quarter: 2025Q1

REPORT INFORMATION
  Report Type: Spontaneous
  Country: US (occurrence: US)
  Receive Date: 20250212
  Receipt Date: 20250219
  Transmission Date: 20250409
  Serious: No
  Sender: ELI LILLY AND COMPANY
  Company Number: US-ELI_LILLY_AND_COMPANY-US202502008238

PATIENT
  Age: 40 Year
  Sex: Male

DRUGS (3)
  1. BASAGLAR [Suspect]
     Active Substance: INSULIN GLARGINE
     Indication: Diabetes mellitus
     Dosage: 18 U, DAILY (AT BEDTIME)
     Route: 065
     Dates: start: 20250124
  2. HUMALOG [Suspect]
     Active Substance: INSULIN LISPRO
     Indication: Product used for unknown indication
     Dosage: 5 U, BID (BREAKFAST AND LUNCH)
     Route: 065
     Dates: start: 20241231
  3. HUMALOG [Suspect]
     Active Substance: INSULIN LISPRO
     Dosage: 8 U, DAILY (AT SUPPER)
     Route: 065
     Dates: start: 20241231

REACTIONS (7)
  - Pain [Unknown]
  - Dysstasia [Unknown]
  - Balance disorder [Unknown]
  - Ankle fracture [Unknown]
  - Gait disturbance [Unknown]
  - Neuropathy peripheral [Unknown]
  - Somnolence [Unknown]
